FAERS Safety Report 9383154 (Version 1)
Quarter: 2013Q3

REPORT INFORMATION
  Report Type: Spontaneous
  Country: NL (occurrence: NL)
  Receive Date: 20130704
  Receipt Date: 20130704
  Transmission Date: 20140515
  Serious: Yes (Hospitalization, Other)
  Sender: FDA-Public Use
  Company Number: NL-009507513-1307NLD000071

PATIENT
  Age: 59 Year
  Sex: Female
  Weight: 59 kg

DRUGS (4)
  1. FOSAMAX 70MG EEN TABLET PER WEEK [Suspect]
     Indication: OSTEOPOROSIS
     Dosage: 70 MG, QW
     Route: 048
     Dates: start: 2005
  2. PLAQUENIL [Concomitant]
     Dosage: 200 MG, BID
     Route: 048
     Dates: start: 2007
  3. DICLOFENAC SODIUM (+) MISOPROSTOL [Concomitant]
     Dosage: 75 MG/200UG, BID
     Route: 048
     Dates: start: 2011
  4. NEXIUM [Concomitant]
     Dosage: 20 MG, BID
     Route: 048
     Dates: start: 2004

REACTIONS (2)
  - Femur fracture [Recovering/Resolving]
  - Surgery [Recovered/Resolved]
